FAERS Safety Report 6313572-7 (Version None)
Quarter: 2009Q3

REPORT INFORMATION
  Report Type: 
  Country: None (occurrence: None)
  Receive Date: 20090814
  Receipt Date: 20090803
  Transmission Date: 20100115
  Serious: Yes (Other)
  Sender: FDA-Public Use
  Company Number: 1000008045

PATIENT
  Sex: Female
  Weight: 50 kg

DRUGS (4)
  1. CITALOPRAM HYDROBROMIDE [Suspect]
     Indication: ANXIETY
     Dosage: 15 MG (15 MG,1 IN 1 D), ORAL ANXIETY
     Route: 048
     Dates: start: 20090101, end: 20090709
  2. CITALOPRAM HYDROBROMIDE [Suspect]
     Indication: ANXIETY
     Dosage: 5 MG (5 MG,1 IN 1  D),ORAL;  10 MG (10 MG,1 IN 1 D), ORAL
     Route: 048
     Dates: start: 20090101, end: 20090101
  3. CITALOPRAM HYDROBROMIDE [Suspect]
     Indication: ANXIETY
     Dosage: 5 MG (5 MG,1 IN 1  D),ORAL;  10 MG (10 MG,1 IN 1 D), ORAL
     Route: 048
     Dates: start: 20090601, end: 20090101
  4. ERYTHROMYCIN [Suspect]
     Indication: ACNE
     Dosage: 250 MG (250 MG,1 IN 1 D), ORAL
     Route: 048
     Dates: start: 20090601, end: 20090709

REACTIONS (6)
  - AGITATION [None]
  - HEADACHE [None]
  - MUSCLE TWITCHING [None]
  - RESTLESSNESS [None]
  - SEROTONIN SYNDROME [None]
  - TREMOR [None]
